FAERS Safety Report 6840290-9 (Version None)
Quarter: 2010Q3

REPORT INFORMATION
  Report Type: 
  Country: None (occurrence: None)
  Receive Date: 20100714
  Receipt Date: 20100707
  Transmission Date: 20110219
  Serious: Yes (Other)
  Sender: FDA-Public Use
  Company Number: JP-MERCK-1007USA01100

PATIENT
  Age: 70 Year
  Sex: Female

DRUGS (2)
  1. PEPCID RPD [Suspect]
     Route: 048
     Dates: end: 20100706
  2. AMLODIPINE BESYLATE [Concomitant]
     Route: 048

REACTIONS (1)
  - TUBULOINTERSTITIAL NEPHRITIS [None]
